FAERS Safety Report 11577950 (Version 1)
Quarter: 2015Q3

REPORT INFORMATION
  Report Type: Report from Study
  Country: ES (occurrence: ES)
  Receive Date: 20150930
  Receipt Date: 20150930
  Transmission Date: 20151125
  Serious: Yes (Hospitalization)
  Sender: FDA-Public Use
  Company Number: ES-AMGEN-ESPCT2015100033

PATIENT
  Age: 74 Year
  Sex: Male
  Weight: 79 kg

DRUGS (7)
  1. FORADIL [Concomitant]
     Active Substance: FORMOTEROL FUMARATE
     Indication: OXYGEN CONSUMPTION INCREASED
     Dosage: 12 MUG, BID
  2. SPIRIVA [Concomitant]
     Active Substance: TIOTROPIUM BROMIDE MONOHYDRATE
     Indication: OXYGEN CONSUMPTION INCREASED
     Dosage: 18 MUG, AS NECESSARY
  3. CISPLATIN. [Concomitant]
     Active Substance: CISPLATIN
     Indication: NON-SMALL CELL LUNG CANCER
     Dosage: 133.50 MG, Q3WK
     Route: 042
     Dates: start: 20150611
  4. CALODIS [Concomitant]
     Indication: PROPHYLAXIS
     Dosage: 1000 MG, QD
     Route: 048
     Dates: start: 20150611
  5. MIFLONIDE [Concomitant]
     Active Substance: BUDESONIDE
     Indication: OXYGEN CONSUMPTION INCREASED
     Dosage: 400 MUG, BID
  6. GEMCITABINE [Suspect]
     Active Substance: GEMCITABINE\GEMCITABINE HYDROCHLORIDE
     Indication: NON-SMALL CELL LUNG CANCER
     Dosage: 2225 MG, Q3WK
     Route: 042
     Dates: start: 20150611
  7. DENOSUMAB [Suspect]
     Active Substance: DENOSUMAB
     Indication: NON-SMALL CELL LUNG CANCER
     Dosage: 120 MG, Q4WK
     Route: 058
     Dates: start: 20150611

REACTIONS (1)
  - Rash macular [Recovered/Resolved]

NARRATIVE: CASE EVENT DATE: 20150909
